FAERS Safety Report 15061608 (Version 2)
Quarter: 2018Q3

REPORT INFORMATION
  Report Type: Spontaneous
  Country: HU (occurrence: HU)
  Receive Date: 20180625
  Receipt Date: 20180706
  Transmission Date: 20181010
  Serious: Yes (Disabling, Other)
  Sender: FDA-Public Use
  Company Number: HU-BAYER-2018-116610

PATIENT
  Age: 79 Year
  Sex: Male

DRUGS (2)
  1. ASPIRIN PROTECT 100 MG [Suspect]
     Active Substance: ASPIRIN
     Indication: CARDIOVASCULAR DISORDER
     Dosage: UNK
     Route: 048
  2. ACENOCOUMAROL [Suspect]
     Active Substance: ACENOCOUMAROL
     Indication: CARDIOVASCULAR DISORDER
     Dosage: UNK

REACTIONS (4)
  - Labelled drug-drug interaction medication error [None]
  - Choroidal detachment [None]
  - Choroidal detachment [None]
  - Blindness unilateral [None]

NARRATIVE: CASE EVENT DATE: 201603
